FAERS Safety Report 7131726-7 (Version None)
Quarter: 2010Q4

REPORT INFORMATION
  Report Type: 
  Country: None (occurrence: None)
  Receive Date: 20101201
  Receipt Date: 20101108
  Transmission Date: 20110411
  Serious: Yes (Other)
  Sender: FDA-Public Use
  Company Number: NL-AMGEN-NLDSP2010004506

PATIENT

DRUGS (10)
  1. ENBREL [Suspect]
     Indication: PRODUCT USED FOR UNKNOWN INDICATION
     Dosage: 50 MG, WEEKLY
     Dates: start: 20100506
  2. CALCICHEW-D3 [Concomitant]
     Dosage: 500 MG, 1X/DAY
  3. PREDNISOLONE [Concomitant]
     Dosage: 10 MG, 1X/DAY
  4. HYDROCHLOROTHIAZIDE [Concomitant]
     Dosage: 25 MG, 1X/DAY
  5. PAROXETINE [Concomitant]
     Dosage: 20 MG, 1X/DAY
  6. METOPROLOL [Concomitant]
     Dosage: 50 MG, 1X/DAY
  7. PYRIDOXINE HCL [Concomitant]
     Dosage: 20 MG, 1X/DAY
  8. ISONIAZID [Concomitant]
     Dosage: 300 MG, 1X/DAY
  9. DIAZEPAM [Concomitant]
     Dosage: 5 MG, 1X/DAY
  10. ARAVA [Concomitant]
     Dosage: 20 MG, 1X/DAY

REACTIONS (3)
  - DRY SKIN [None]
  - OSTEOPOROSIS [None]
  - PRURITUS [None]
